FAERS Safety Report 7507687-5 (Version None)
Quarter: 2011Q2

REPORT INFORMATION
  Report Type: 
  Country: None (occurrence: None)
  Receive Date: 20110527
  Receipt Date: 20110519
  Transmission Date: 20111010
  Serious: Yes (Hospitalization)
  Sender: FDA-Public Use
  Company Number: US-BIOGENIDEC-2011BI016639

PATIENT
  Age: 70 Year
  Sex: Male

DRUGS (1)
  1. AVONEX [Suspect]
     Indication: MULTIPLE SCLEROSIS
     Route: 030
     Dates: start: 19971214

REACTIONS (2)
  - LOWER LIMB FRACTURE [None]
  - FALL [None]
